FAERS Safety Report 25826005 (Version 3)
Quarter: 2025Q4

REPORT INFORMATION
  Report Type: Spontaneous
  Country: EU (occurrence: EU)
  Receive Date: 20250919
  Receipt Date: 20251020
  Transmission Date: 20260117
  Serious: Yes (Other)
  Sender: MERCK SHARP & DOHME LLC
  Company Number: EU-009507513-2329077

PATIENT
  Sex: Male

DRUGS (2)
  1. KEYTRUDA [Suspect]
     Active Substance: PEMBROLIZUMAB
     Dates: start: 202411, end: 202507
  2. KEYTRUDA [Suspect]
     Active Substance: PEMBROLIZUMAB
     Dates: start: 2025

REACTIONS (2)
  - Glucocorticoid deficiency [Recovering/Resolving]
  - Dry mouth [Unknown]

NARRATIVE: CASE EVENT DATE: 20250101
